APPROVED DRUG PRODUCT: STRIANT
Active Ingredient: TESTOSTERONE
Strength: 30MG
Dosage Form/Route: TABLET, EXTENDED RELEASE;BUCCAL
Application: N021543 | Product #001
Applicant: AUXILIUM PHARMACEUTICALS LLC
Approved: Jun 19, 2003 | RLD: Yes | RS: No | Type: DISCN